FAERS Safety Report 7914814-4 (Version None)
Quarter: 2011Q4

REPORT INFORMATION
  Report Type: 
  Country: None (occurrence: None)
  Receive Date: 20111115
  Receipt Date: 20111109
  Transmission Date: 20120403
  Serious: Yes (Other)
  Sender: FDA-Public Use
  Company Number: ES-SANOFI-AVENTIS-2011SA073637

PATIENT
  Age: 66 Year
  Sex: Female

DRUGS (6)
  1. MULTAQ [Suspect]
     Indication: ATRIAL FIBRILLATION
     Route: 048
     Dates: start: 20110104, end: 20110208
  2. DILTIAZEM HYDROCHLORIDE [Suspect]
     Indication: HYPERTENSION
     Route: 065
     Dates: start: 20110110, end: 20110208
  3. ATORVASTATIN [Concomitant]
  4. BISOPROLOL [Concomitant]
  5. ACETYLSALICYLIC ACID SRT [Concomitant]
  6. PANTOPRAZOLE [Concomitant]

REACTIONS (2)
  - BLOOD ALKALINE PHOSPHATASE INCREASED [None]
  - TRANSAMINASES INCREASED [None]
